FAERS Safety Report 4561570-6 (Version None)
Quarter: 2005Q1

REPORT INFORMATION
  Report Type: 
  Country: None (occurrence: None)
  Receive Date: 20050121
  Receipt Date: 20041221
  Transmission Date: 20050727
  Serious: Yes (Hospitalization, Other)
  Sender: FDA-Public Use
  Company Number: USA041286621

PATIENT
  Age: 89 Year
  Sex: Female
  Weight: 44.4525 kg

DRUGS (1)
  1. FORTEO [Suspect]
     Indication: SPINAL FRACTURE
     Dates: start: 20020101

REACTIONS (12)
  - APHASIA [None]
  - ARTHRALGIA [None]
  - ASTHENIA [None]
  - BODY HEIGHT DECREASED [None]
  - CEREBROVASCULAR ACCIDENT [None]
  - FEELING JITTERY [None]
  - HYPOAESTHESIA [None]
  - MEDICAL DEVICE COMPLICATION [None]
  - MYALGIA [None]
  - PAIN [None]
  - TREMOR [None]
  - WEIGHT DECREASED [None]
